FAERS Safety Report 5831686-2 (Version None)
Quarter: 2008Q3

REPORT INFORMATION
  Report Type: 
  Country: None (occurrence: None)
  Receive Date: 20080730
  Receipt Date: 20080716
  Transmission Date: 20090109
  Serious: Yes (Life-Threatening, Hospitalization)
  Sender: FDA-Public Use
  Company Number: 2008AL008490

PATIENT
  Age: 81 Year
  Sex: Female
  Weight: 56.6996 kg

DRUGS (1)
  1. DIGOXIN [Suspect]
     Indication: CARDIAC DISORDER
     Dosage: 0.125MG DAILY PO
     Route: 048

REACTIONS (5)
  - CARDIOACTIVE DRUG LEVEL INCREASED [None]
  - FALL [None]
  - FOOT FRACTURE [None]
  - LOSS OF CONSCIOUSNESS [None]
  - RENAL FAILURE [None]
